FAERS Safety Report 9620634 (Version 1)
Quarter: 2013Q4

REPORT INFORMATION
  Report Type: Report from Study
  Country: US (occurrence: US)
  Receive Date: 20131015
  Receipt Date: 20131015
  Transmission Date: 20140711
  Serious: Yes (Other)
  Sender: FDA-Public Use
  Company Number: US-ROCHE-1288713

PATIENT
  Sex: 0

DRUGS (8)
  1. BEVACIZUMAB [Suspect]
     Indication: AGE-RELATED MACULAR DEGENERATION
     Dosage: 1.25 MG/0.05 ML
     Route: 050
  2. BEVACIZUMAB [Suspect]
     Indication: RETINAL VEIN OCCLUSION
  3. BEVACIZUMAB [Suspect]
     Indication: CYSTOID MACULAR OEDEMA
  4. BEVACIZUMAB [Suspect]
     Indication: DIABETIC RETINAL OEDEMA
  5. RANIBIZUMAB [Suspect]
     Indication: AGE-RELATED MACULAR DEGENERATION
     Dosage: 0.5 MG/.05 ML
     Route: 050
  6. RANIBIZUMAB [Suspect]
     Indication: RETINAL VEIN OCCLUSION
  7. RANIBIZUMAB [Suspect]
     Indication: CYSTOID MACULAR OEDEMA
  8. RANIBIZUMAB [Suspect]
     Indication: DIABETIC RETINAL OEDEMA

REACTIONS (3)
  - Ocular hypertension [Unknown]
  - Glaucoma [Unknown]
  - Off label use [Unknown]
